FAERS Safety Report 9859147 (Version 2)
Quarter: 2014Q2

REPORT INFORMATION
  Report Type: Spontaneous
  Country: DE (occurrence: DE)
  Receive Date: 20140131
  Receipt Date: 20140502
  Transmission Date: 20141212
  Serious: Yes (Hospitalization)
  Sender: FDA-Public Use
  Company Number: DE-JNJFOC-20140117351

PATIENT
  Age: 74 Year
  Sex: Male
  Weight: 74 kg

DRUGS (5)
  1. XARELTO [Suspect]
     Indication: CEREBROVASCULAR ACCIDENT PROPHYLAXIS
     Route: 048
     Dates: start: 20130927, end: 20140121
  2. XARELTO [Suspect]
     Indication: ATRIAL FIBRILLATION
     Route: 048
     Dates: start: 20130927, end: 20140121
  3. FLUNARIZIN [Concomitant]
     Indication: DIZZINESS
     Route: 048
     Dates: start: 201310, end: 20140121
  4. FLECAINIDE [Concomitant]
     Indication: ARRHYTHMIA
     Route: 048
     Dates: start: 20131014, end: 20140112
  5. BISOPROLOL [Concomitant]
     Indication: HYPERTENSION
     Route: 065
     Dates: start: 20130927, end: 20140121

REACTIONS (7)
  - Cardiovascular disorder [Recovering/Resolving]
  - Arthralgia [Recovering/Resolving]
  - Syncope [Recovered/Resolved]
  - Fatigue [Not Recovered/Not Resolved]
  - Circulatory collapse [Unknown]
  - Malaise [Recovering/Resolving]
  - Inguinal hernia [Unknown]
